FAERS Safety Report 5203400-5 (Version None)
Quarter: 2007Q1

REPORT INFORMATION
  Report Type: 
  Country: None (occurrence: None)
  Receive Date: 20070105
  Receipt Date: 20061220
  Transmission Date: 20070707
  Serious: Yes (Hospitalization)
  Sender: FDA-Public Use
  Company Number: 2006002370

PATIENT
  Age: 50 Year
  Sex: Female

DRUGS (7)
  1. ERLOTINIB (TABLET) [Suspect]
     Indication: COLORECTAL CANCER
     Dosage: 150 MG (QD), ORAL
     Route: 048
     Dates: start: 20060919
  2. CAPECITABINE (CAPECITABINE) (TABLET) [Suspect]
     Indication: COLORECTAL CANCER
     Dosage: 1800 MG (BID), ORAL
     Route: 048
     Dates: start: 20060919, end: 20061002
  3. LOPERAMIDE HCL [Concomitant]
  4. MAGNESIUM HYDROXIDE (MAGNESIUM HYDROXIDE) [Concomitant]
  5. COLACE (DOCUSATE SODIUM) [Concomitant]
  6. POTASSIUM CHLORIDE [Concomitant]
  7. METHYLPHENIDATE HCL [Concomitant]

REACTIONS (4)
  - BLOOD BILIRUBIN INCREASED [None]
  - INTESTINAL OBSTRUCTION [None]
  - RASH [None]
  - SMALL INTESTINAL OBSTRUCTION [None]
